FAERS Safety Report 9391266 (Version 3)
Quarter: 2015Q3

REPORT INFORMATION
  Report Type: Report from Study
  Country: US (occurrence: US)
  Receive Date: 20130709
  Receipt Date: 20150727
  Transmission Date: 20151125
  Serious: Yes (Life-Threatening, Other)
  Sender: FDA-Public Use
  Company Number: US-009507513-1307USA004149

PATIENT

DRUGS (2)
  1. SYLATRON [Suspect]
     Active Substance: PEGINTERFERON ALFA-2B
     Indication: PLASMA CELL MYELOMA
     Dosage: 4.5 MICROGRAM PER KILOGRAM, QW
     Route: 058
  2. DECITABINE. [Suspect]
     Active Substance: DECITABINE
     Indication: PLASMA CELL MYELOMA
     Dosage: 10 MG/M2, QD DAYS 1-5 EVERY 28 DAYS
     Route: 042

REACTIONS (3)
  - Leukopenia [Unknown]
  - Neutropenia [Unknown]
  - Thrombocytopenia [Unknown]
